FAERS Safety Report 5042522-9 (Version None)
Quarter: 2006Q2

REPORT INFORMATION
  Report Type: 
  Country: None (occurrence: None)
  Receive Date: 20060627
  Receipt Date: 20060608
  Transmission Date: 20061013
  Serious: Yes (Life-Threatening, Hospitalization)
  Sender: FDA-Public Use
  Company Number: CZ200606002303

PATIENT
  Age: 35 Year
  Sex: Male

DRUGS (4)
  1. HUMALOG [Suspect]
     Indication: DIABETES MELLITUS INSULIN-DEPENDENT
     Dosage: 12 IU, 2/D, SUBCUTANEOUS; 14 IU, DAILY (1/D), SUBCUTANEOUS; 60 IU, SUBCUTANEOUS
     Route: 058
     Dates: start: 20060530, end: 20060530
  2. HUMALOG [Suspect]
     Indication: DIABETES MELLITUS INSULIN-DEPENDENT
     Dosage: 12 IU, 2/D, SUBCUTANEOUS; 14 IU, DAILY (1/D), SUBCUTANEOUS; 60 IU, SUBCUTANEOUS
     Route: 058
     Dates: start: 20060101
  3. HUMALOG [Suspect]
     Indication: DIABETES MELLITUS INSULIN-DEPENDENT
     Dosage: 12 IU, 2/D, SUBCUTANEOUS; 14 IU, DAILY (1/D), SUBCUTANEOUS; 60 IU, SUBCUTANEOUS
     Route: 058
     Dates: start: 20060101
  4. HUMULIN (HUMULIN INSULIN (RDNA ORIGIN) NPH [Concomitant]

REACTIONS (5)
  - HYPOGLYCAEMIC COMA [None]
  - INTENTIONAL OVERDOSE [None]
  - PSYCHOMOTOR HYPERACTIVITY [None]
  - RESPIRATORY TRACT INFECTION [None]
  - SUICIDE ATTEMPT [None]
